FAERS Safety Report 6328927-4 (Version None)
Quarter: 2009Q3

REPORT INFORMATION
  Report Type: 
  Country: None (occurrence: None)
  Receive Date: 20090826
  Receipt Date: 20090819
  Transmission Date: 20100115
  Serious: No
  Sender: FDA-Public Use
  Company Number: US-JNJFOC-20090806542

PATIENT
  Sex: Female
  Weight: 65.77 kg

DRUGS (6)
  1. FENTANYL TRANSDERMAL SYSTEM [Suspect]
     Indication: SYSTEMIC LUPUS ERYTHEMATOSUS
     Route: 062
  2. PREDNISONE [Concomitant]
     Indication: SYSTEMIC LUPUS ERYTHEMATOSUS
     Route: 048
  3. METHOTREXATE [Concomitant]
     Indication: SYSTEMIC LUPUS ERYTHEMATOSUS
     Dosage: TEN 2.5 TABLETS WEEK
     Route: 048
  4. PLAQUENIL [Concomitant]
     Indication: SYSTEMIC LUPUS ERYTHEMATOSUS
     Route: 048
  5. FLEXERIL [Concomitant]
     Indication: FIBROMYALGIA
     Route: 048
  6. ROXICODONE [Concomitant]
     Indication: FIBROMYALGIA
     Dosage: AS NEEDED
     Route: 048

REACTIONS (3)
  - DEVICE ADHESION ISSUE [None]
  - TREATMENT NONCOMPLIANCE [None]
  - WRONG TECHNIQUE IN DRUG USAGE PROCESS [None]
